FAERS Safety Report 20934997 (Version 1)
Quarter: 2022Q2

REPORT INFORMATION
  Report Type: Spontaneous
  Country: US (occurrence: None)
  Receive Date: 20220608
  Receipt Date: 20220608
  Transmission Date: 20220721
  Serious: No
  Sender: FDA-Public Use
  Company Number: US-ROCHE-2834408

PATIENT
  Age: 16 Year
  Sex: Female
  Weight: 101.70 kg

DRUGS (4)
  1. ACTEMRA [Suspect]
     Active Substance: TOCILIZUMAB
     Indication: Juvenile idiopathic arthritis
     Route: 042
     Dates: start: 201901
  2. ACTEMRA [Suspect]
     Active Substance: TOCILIZUMAB
     Indication: Juvenile idiopathic arthritis
     Route: 058
     Dates: start: 201906
  3. GABAPENTIN [Concomitant]
     Active Substance: GABAPENTIN
     Indication: Pain
     Dosage: 600 MG AT NIGHT AND 300 MG IN MORNING
     Route: 048
     Dates: start: 2018
  4. GABAPENTIN [Concomitant]
     Active Substance: GABAPENTIN
     Indication: Insomnia

REACTIONS (5)
  - Therapeutic product effect incomplete [Unknown]
  - Fibromyalgia [Not Recovered/Not Resolved]
  - Condition aggravated [Unknown]
  - Joint swelling [Unknown]
  - Anaemia [Unknown]

NARRATIVE: CASE EVENT DATE: 20191001
